FAERS Safety Report 8588549-1 (Version None)
Quarter: 2012Q3

REPORT INFORMATION
  Report Type: 
  Country: None (occurrence: None)
  Receive Date: 20120803
  Receipt Date: 20120803
  Transmission Date: 20120928
  Serious: Yes (Other)
  Sender: FDA-Public Use
  Company Number: None

PATIENT
  Sex: Male

DRUGS (13)
  1. PACERONE [Concomitant]
  2. LORCET-HD [Concomitant]
  3. COZAAR [Concomitant]
  4. PLAVIX [Concomitant]
  5. ASPIRIN [Concomitant]
  6. XFORGE [Concomitant]
  7. TESTERONE [Concomitant]
  8. ZYFLAMEND [Concomitant]
  9. XANIX [Concomitant]
  10. PHILLIPS STOOL SOFTNER [Concomitant]
  11. METOPROLOL TARTRATE [Suspect]
     Indication: HYPERTENSION
     Dosage: 100MG ONCE A DAY PO
     Route: 048
  12. HTZ [Concomitant]
  13. SIMVASTATIN [Concomitant]

REACTIONS (1)
  - PEYRONIE'S DISEASE [None]
